FAERS Safety Report 6818614-8 (Version None)
Quarter: 2010Q2

REPORT INFORMATION
  Report Type: 
  Country: None (occurrence: None)
  Receive Date: 20100630
  Receipt Date: 20100621
  Transmission Date: 20101027
  Serious: Yes (Other)
  Sender: FDA-Public Use
  Company Number: 623192

PATIENT
  Age: 56 Year
  Sex: Female

DRUGS (2)
  1. PACLITAXEL [Suspect]
     Indication: OVARIAN EPITHELIAL CANCER STAGE III
     Dosage: 175 MG/BSA OVER 6-8 HOURS, UNKNOWN, UNKNOWN
  2. CARBOPLATIN [Concomitant]

REACTIONS (2)
  - FACIAL PALSY [None]
  - NEUROPATHY PERIPHERAL [None]
